FAERS Safety Report 9528889 (Version 2)
Quarter: 2013Q3

REPORT INFORMATION
  Report Type: Spontaneous
  Country: US (occurrence: US)
  Receive Date: 20130917
  Receipt Date: 20130917
  Transmission Date: 20140515
  Serious: No
  Sender: FDA-Public Use
  Company Number: US-BANPHARM-20130621

PATIENT
  Age: 27 Year
  Sex: Female
  Weight: 86.18 kg

DRUGS (1)
  1. ZYRTEC LIQUID GELS 10 MG [Suspect]
     Indication: LACRIMATION INCREASED
     Dosage: 1 DF, QD,
     Route: 048
     Dates: start: 20130126, end: 20130128

REACTIONS (1)
  - Drug ineffective [Unknown]
